FAERS Safety Report 7236091-2 (Version None)
Quarter: 2011Q1

REPORT INFORMATION
  Report Type: 
  Country: None (occurrence: None)
  Receive Date: 20110111
  Receipt Date: 20101221
  Transmission Date: 20110831
  Serious: Yes (Hospitalization)
  Sender: FDA-Public Use
  Company Number: 2010177136

PATIENT
  Age: 55 Year
  Sex: Female

DRUGS (8)
  1. MORPHINE SULFATE INJ [Concomitant]
  2. CITALOPRAM HYDROBROMIDE [Concomitant]
  3. DALTEPARIN SODIUM [Suspect]
     Indication: LUNG NEOPLASM MALIGNANT
     Dates: start: 20101123
  4. ATORVASTATIN CALCIUM [Concomitant]
  5. INSULIN GLARGINE (INSULIN GLARGINE) [Concomitant]
  6. METFORMIN HCL [Concomitant]
  7. INSULIN ASPART (INSULIN ASPART) [Concomitant]
  8. OMEPRAZOLE [Concomitant]

REACTIONS (11)
  - DIARRHOEA [None]
  - VOMITING [None]
  - HAEMOGLOBIN DECREASED [None]
  - URINARY TRACT INFECTION [None]
  - CHOLECYSTITIS [None]
  - WHITE BLOOD CELL COUNT DECREASED [None]
  - BURNING SENSATION [None]
  - EPISTAXIS [None]
  - HAEMATEMESIS [None]
  - PNEUMONIA [None]
  - NEUTROPENIC SEPSIS [None]
